FAERS Safety Report 11080951 (Version 1)
Quarter: 2015Q2

REPORT INFORMATION
  Report Type: Spontaneous
  Country: US (occurrence: None)
  Receive Date: 20150430
  Receipt Date: 20150430
  Transmission Date: 20150821
  Serious: No
  Sender: FDA-Public Use
  Company Number: None

PATIENT
  Age: 40 Year
  Sex: Female
  Weight: 113.4 kg

DRUGS (2)
  1. OXYCODONE AND ACETAMINOPHEN [Suspect]
     Active Substance: ACETAMINOPHEN\OXYCODONE\OXYCODONE HYDROCHLORIDE
     Indication: PAIN MANAGEMENT
     Route: 048
  2. PHENTERMINE [Concomitant]
     Active Substance: PHENTERMINE

REACTIONS (9)
  - Dysgeusia [None]
  - Diarrhoea [None]
  - Inadequate analgesia [None]
  - Product substitution issue [None]
  - Nausea [None]
  - Gastrooesophageal reflux disease [None]
  - Dyspepsia [None]
  - Abdominal discomfort [None]
  - Product quality issue [None]

NARRATIVE: CASE EVENT DATE: 20150423
